FAERS Safety Report 6203247-7 (Version None)
Quarter: 2009Q2

REPORT INFORMATION
  Report Type: 
  Country: None (occurrence: None)
  Receive Date: 20090527
  Receipt Date: 20090521
  Transmission Date: 20091009
  Serious: Yes (Life-Threatening, Hospitalization, Other)
  Sender: FDA-Public Use
  Company Number: AU-ROCHE-470011

PATIENT
  Sex: Male
  Weight: 67 kg

DRUGS (14)
  1. CAPECITABINE [Suspect]
     Route: 048
     Dates: start: 20061013
  2. BEVACIZUMAB [Suspect]
     Route: 042
     Dates: start: 20061013
  3. MITOMYCIN [Suspect]
     Route: 042
  4. MITOMYCIN [Suspect]
     Route: 042
     Dates: start: 20061013
  5. NIZATIDINE [Concomitant]
     Indication: ILL-DEFINED DISORDER
     Route: 048
     Dates: start: 20060801
  6. LISINOPRIL [Concomitant]
     Indication: ILL-DEFINED DISORDER
     Route: 048
     Dates: start: 19980101
  7. PARACETAMOL [Concomitant]
     Indication: PROPHYLAXIS
     Route: 048
     Dates: start: 20061030, end: 20061101
  8. COLOXYL WITH SENNA [Concomitant]
     Indication: PROPHYLAXIS
     Dosage: DOSE: STAT
     Route: 048
     Dates: start: 20061102, end: 20061102
  9. BISACODYL [Concomitant]
     Indication: PROPHYLAXIS
     Dosage: FREQUENCY: STAT
     Route: 054
     Dates: start: 20061103, end: 20061103
  10. GLYCEROL 2.6% [Concomitant]
     Indication: PROPHYLAXIS
     Dosage: FREQUNCY: STAT, DRUG NAME: GLYCEROL SUPPOSITORY.
     Route: 054
     Dates: start: 20061103, end: 20061103
  11. COLOXYL WITH SENNA [Concomitant]
     Route: 050
     Dates: start: 20061106, end: 20061106
  12. COLOXYL WITH SENNA [Concomitant]
     Route: 050
     Dates: start: 20061109
  13. COLOXYL [Concomitant]
     Indication: PROPHYLAXIS
     Route: 048
     Dates: start: 20061109
  14. LASIX [Concomitant]
     Indication: PROPHYLAXIS
     Route: 042
     Dates: start: 20080409, end: 20080409

REACTIONS (3)
  - ILEUS PARALYTIC [None]
  - INTESTINAL OBSTRUCTION [None]
  - MALIGNANT HYPERTENSION [None]
